FAERS Safety Report 21641427 (Version 22)
Quarter: 2025Q4

REPORT INFORMATION
  Report Type: Spontaneous
  Country: CA (occurrence: CA)
  Receive Date: 20221125
  Receipt Date: 20251011
  Transmission Date: 20260118
  Serious: Yes (Hospitalization, Other)
  Sender: CELLTRION
  Company Number: CA-CELLTRION INC.-2022CA019856

PATIENT

DRUGS (30)
  1. INFLECTRA [Suspect]
     Active Substance: INFLIXIMAB-DYYB
     Indication: Crohn^s disease
     Dosage: 10 MG/KG, EVERY 8 WEEK (HOSPITAL START)
     Route: 042
     Dates: start: 20221111
  2. INFLECTRA [Suspect]
     Active Substance: INFLIXIMAB-DYYB
     Dosage: 10 MG/KG (400 MG), EVERY 8 WEEK
     Route: 042
     Dates: start: 20221124
  3. INFLECTRA [Suspect]
     Active Substance: INFLIXIMAB-DYYB
     Dosage: 10 MG/KG (400 MG), EVERY 8 WEEKS
     Route: 042
     Dates: start: 20221223
  4. INFLECTRA [Suspect]
     Active Substance: INFLIXIMAB-DYYB
     Dosage: 10 MG/KG (400 MG), EVERY 8 WEEKS
     Route: 042
     Dates: start: 20230220
  5. INFLECTRA [Suspect]
     Active Substance: INFLIXIMAB-DYYB
     Dosage: 10 MG/KG (440 MG), EVERY 4 WEEKS ROUNDED UP TO THE HIGHEST VIAL
     Route: 042
     Dates: start: 20230320, end: 20230320
  6. INFLECTRA [Suspect]
     Active Substance: INFLIXIMAB-DYYB
     Dosage: 10 MG/KG, EVERY 4 WEEKS
     Route: 042
     Dates: start: 20230516
  7. INFLECTRA [Suspect]
     Active Substance: INFLIXIMAB-DYYB
     Dosage: 10 MG/KG (500 MG), EVERY 4 WEEKS
     Route: 042
     Dates: start: 20230614
  8. INFLECTRA [Suspect]
     Active Substance: INFLIXIMAB-DYYB
     Dosage: 500 MG, EVERY 4 WEEKS
     Route: 042
     Dates: start: 20230711
  9. INFLECTRA [Suspect]
     Active Substance: INFLIXIMAB-DYYB
     Dosage: 500 MG, AFTER 6 WEEKS AND 1 DAY (PRESCRIBED EVERY 4 WEEKS)
     Route: 042
     Dates: start: 20230823
  10. INFLECTRA [Suspect]
     Active Substance: INFLIXIMAB-DYYB
     Dosage: 500 MG, EVERY 4 WEEKS
     Route: 042
     Dates: start: 20230920
  11. INFLECTRA [Suspect]
     Active Substance: INFLIXIMAB-DYYB
     Dosage: 10 MG/KG (500 MG), EVERY 4 WEEKS
     Route: 042
     Dates: start: 20231018
  12. INFLECTRA [Suspect]
     Active Substance: INFLIXIMAB-DYYB
     Dosage: 10 MG/KG, EVERY 4 WEEKS
     Route: 042
     Dates: start: 20231115
  13. INFLECTRA [Suspect]
     Active Substance: INFLIXIMAB-DYYB
     Dosage: 10 MG/KG (500 MG), EVERY 4 WEEKS
     Route: 042
     Dates: start: 20231213
  14. INFLECTRA [Suspect]
     Active Substance: INFLIXIMAB-DYYB
     Dosage: 10 MG/KG (500 MG), AFTER 4 WEEKS AND 2 DAYS, ROUNDED UP TO THE HIGHEST VIAL
     Route: 042
     Dates: start: 20240112
  15. INFLECTRA [Suspect]
     Active Substance: INFLIXIMAB-DYYB
     Dosage: 10 MG/KG, EVERY 4 WEEKS
     Route: 042
     Dates: start: 20240306
  16. INFLECTRA [Suspect]
     Active Substance: INFLIXIMAB-DYYB
     Dosage: 10 MG/KG (500 MG), EVERY 4 WEEKS
     Route: 042
     Dates: start: 20240403
  17. INFLECTRA [Suspect]
     Active Substance: INFLIXIMAB-DYYB
     Dosage: 10 MG/KG, EVERY 4 WEEKS (ROUNDED UP TO THE HIGHEST VIAL)
     Route: 042
     Dates: start: 20240529
  18. INFLECTRA [Suspect]
     Active Substance: INFLIXIMAB-DYYB
     Dosage: 10 MG/KG (500MG), EVERY 4 WEEKS (ROUNDED UP TO THE NEXT VIAL)
     Route: 042
     Dates: start: 20240626
  19. INFLECTRA [Suspect]
     Active Substance: INFLIXIMAB-DYYB
     Dosage: 10 MG/KG (500MG), EVERY 4 WEEKS (ROUNDED UP TO THE HIGHEST VIAL)
     Route: 042
     Dates: start: 20240724
  20. INFLECTRA [Suspect]
     Active Substance: INFLIXIMAB-DYYB
     Dosage: 10 MG/KG (500MG), EVERY 4 WEEKS (ROUNDED UP TO THE HIGHEST VIAL)
     Route: 042
     Dates: start: 20240821
  21. INFLECTRA [Suspect]
     Active Substance: INFLIXIMAB-DYYB
     Dosage: 500 MG (10 MG/KG), EVERY 4 WEEKS
     Route: 042
     Dates: start: 20240918
  22. INFLECTRA [Suspect]
     Active Substance: INFLIXIMAB-DYYB
     Dosage: 500 MG (10 MG/KG), EVERY 4 WEEKS
     Route: 042
     Dates: start: 20240918
  23. INFLECTRA [Suspect]
     Active Substance: INFLIXIMAB-DYYB
     Dosage: 500 MG (10 MG/KG), AFTER 4 WEEKS AND 2 DAYS (PRESCRIBED EVERY 4 WEEKS)
     Route: 042
     Dates: start: 20241018
  24. CALCIUM [Concomitant]
     Active Substance: CALCIUM
     Dosage: UNK
  25. CORTISONE [Concomitant]
     Active Substance: CORTISONE
     Dosage: 35 MG
  26. FOLIC ACID [Concomitant]
     Active Substance: FOLIC ACID
     Dosage: UNK
  27. METHOTREXATE [Concomitant]
     Active Substance: METHOTREXATE
     Dosage: UNK
  28. SOLU-MEDROL [Concomitant]
     Active Substance: METHYLPREDNISOLONE SODIUM SUCCINATE
     Dosage: HOSPITAL START
     Dates: start: 20221111
  29. RETINOL [Concomitant]
     Active Substance: RETINOL
     Dosage: UNK
  30. CHOLECALCIFEROL [Concomitant]
     Active Substance: CHOLECALCIFEROL
     Dosage: UNK

REACTIONS (29)
  - Fall [Unknown]
  - Fracture [Unknown]
  - Pain in extremity [Not Recovered/Not Resolved]
  - Condition aggravated [Recovered/Resolved]
  - Intestinal ulcer [Unknown]
  - Arthralgia [Not Recovered/Not Resolved]
  - Systemic lupus erythematosus [Not Recovered/Not Resolved]
  - Rheumatoid arthritis [Not Recovered/Not Resolved]
  - Faecaloma [Not Recovered/Not Resolved]
  - Condition aggravated [Recovered/Resolved]
  - Drug level decreased [Unknown]
  - Spider vein [Not Recovered/Not Resolved]
  - Asthenia [Unknown]
  - Weight decreased [Recovered/Resolved]
  - Gait disturbance [Unknown]
  - Haemorrhoids [Unknown]
  - Joint stiffness [Not Recovered/Not Resolved]
  - Acrochordon [Not Recovered/Not Resolved]
  - Dry mouth [Not Recovered/Not Resolved]
  - Fatigue [Not Recovered/Not Resolved]
  - Dry skin [Not Recovered/Not Resolved]
  - Alopecia [Recovered/Resolved]
  - Steatorrhoea [Unknown]
  - Defaecation urgency [Not Recovered/Not Resolved]
  - Off label use [Unknown]
  - Off label use [Unknown]
  - Off label use [Unknown]
  - Intentional product use issue [Unknown]
  - Inappropriate schedule of product administration [Unknown]

NARRATIVE: CASE EVENT DATE: 20220101
